FAERS Safety Report 4947616-1 (Version None)
Quarter: 2006Q1

REPORT INFORMATION
  Report Type: 
  Country: None (occurrence: None)
  Receive Date: 20060320
  Receipt Date: 20060308
  Transmission Date: 20060701
  Serious: Yes (Other)
  Sender: FDA-Public Use
  Company Number: BR-JNJFOC-20060302891

PATIENT
  Sex: Male

DRUGS (5)
  1. CONCERTA [Suspect]
     Indication: SUICIDE ATTEMPT
  2. CLONAZEPAM [Suspect]
     Indication: SUICIDE ATTEMPT
     Route: 048
  3. MIDAZOLAM HCL [Suspect]
     Indication: SUICIDE ATTEMPT
     Route: 048
  4. ALCOHOL [Suspect]
     Indication: SUICIDE ATTEMPT
     Route: 048
  5. COCAINE [Suspect]
     Indication: SUICIDE ATTEMPT

REACTIONS (5)
  - MIOSIS [None]
  - MULTIPLE DRUG OVERDOSE INTENTIONAL [None]
  - SOMNOLENCE [None]
  - SUICIDE ATTEMPT [None]
  - TACHYCARDIA [None]
